FAERS Safety Report 10006592 (Version 2)
Quarter: 2014Q1

REPORT INFORMATION
  Report Type: Spontaneous
  Country: US (occurrence: US)
  Receive Date: 20140313
  Receipt Date: 20140321
  Transmission Date: 20141002
  Serious: Yes (Hospitalization)
  Sender: FDA-Public Use
  Company Number: US-ACTELION-A-NJ2014-95986

PATIENT
  Age: 76 Year
  Sex: Female

DRUGS (3)
  1. VENTAVIS [Suspect]
     Indication: PULMONARY ARTERIAL HYPERTENSION
     Dosage: 5 MCG, QID
     Route: 055
  2. VENTAVIS [Suspect]
     Dosage: 5 MCG, QID
     Route: 055
     Dates: start: 2014
  3. COUMADIN [Concomitant]

REACTIONS (3)
  - Blood calcium increased [Recovering/Resolving]
  - Parathyroid gland operation [Recovering/Resolving]
  - Cough [Unknown]
